FAERS Safety Report 12718605 (Version 5)
Quarter: 2017Q4

REPORT INFORMATION
  Report Type: Report from Study
  Country: US (occurrence: US)
  Receive Date: 20160906
  Receipt Date: 20171114
  Transmission Date: 20180320
  Serious: Yes (Hospitalization)
  Sender: FDA-Public Use
  Company Number: US-ACTELION-A-US2016-141654

PATIENT
  Age: 80 Year
  Sex: Female
  Weight: 92.52 kg

DRUGS (3)
  1. PREDNISONE. [Concomitant]
     Active Substance: PREDNISONE
  2. COUMADIN [Concomitant]
     Active Substance: WARFARIN SODIUM
  3. TRACLEER [Suspect]
     Active Substance: BOSENTAN
     Indication: PULMONARY ARTERIAL HYPERTENSION
     Dosage: 125 MG, BID
     Route: 048
     Dates: start: 20130830

REACTIONS (15)
  - Catheterisation cardiac [Unknown]
  - Syncope [Unknown]
  - Tremor [Unknown]
  - Loss of consciousness [Unknown]
  - Myocardial infarction [Unknown]
  - Chronic kidney disease [Unknown]
  - Blood glucose increased [Unknown]
  - Heart valve incompetence [Unknown]
  - Atrial fibrillation [Unknown]
  - Coronary arterial stent insertion [Unknown]
  - Cardiac failure [Unknown]
  - Chronic obstructive pulmonary disease [Unknown]
  - Transfusion [Unknown]
  - Implantable defibrillator insertion [Unknown]
  - Asthenia [Unknown]
